FAERS Safety Report 25410633 (Version 1)
Quarter: 2025Q2

REPORT INFORMATION
  Report Type: Spontaneous
  Country: FR (occurrence: FR)
  Receive Date: 20250609
  Receipt Date: 20250609
  Transmission Date: 20250716
  Serious: Yes (Other)
  Sender: PIRAMAL
  Company Number: FR-PIRAMAL CRITICAL CARE LIMITED-2025-PPL-000324

PATIENT

DRUGS (1)
  1. SEVOFLURANE [Suspect]
     Active Substance: SEVOFLURANE
     Indication: Maintenance of anaesthesia
     Dates: start: 20241223, end: 20241231

REACTIONS (2)
  - Nephrogenic diabetes insipidus [Recovered/Resolved]
  - Hypernatraemia [Recovered/Resolved]

NARRATIVE: CASE EVENT DATE: 20241230
